FAERS Safety Report 5787197-6 (Version None)
Quarter: 2008Q2

REPORT INFORMATION
  Report Type: 
  Country: None (occurrence: None)
  Receive Date: 20080625
  Receipt Date: 20070829
  Transmission Date: 20081010
  Serious: No
  Sender: FDA-Public Use
  Company Number: US-ASTRAZENECA-2007UW20580

PATIENT
  Age: 71 Year
  Sex: Male
  Weight: 99.8 kg

DRUGS (4)
  1. PULMICORT [Suspect]
     Indication: ASTHMA
     Route: 055
     Dates: start: 19980101
  2. SEREVENT [Concomitant]
  3. ACCOLATE [Concomitant]
     Route: 048
  4. PREVOCAL [Concomitant]

REACTIONS (1)
  - WEIGHT DECREASED [None]
